FAERS Safety Report 6012662-6 (Version None)
Quarter: 2008Q4

REPORT INFORMATION
  Report Type: 
  Country: None (occurrence: None)
  Receive Date: 20081218
  Receipt Date: 20070201
  Transmission Date: 20090506
  Serious: Yes (Death)
  Sender: FDA-Public Use
  Company Number: US-GENENTECH, INC.-236529

PATIENT
  Sex: Male

DRUGS (4)
  1. ERLOTINIB [Suspect]
     Indication: NON-SMALL CELL LUNG CANCER
     Dosage: 50 MG, QD
     Route: 048
     Dates: start: 20060801
  2. AVASTIN [Suspect]
     Indication: NON-SMALL CELL LUNG CANCER
     Dosage: 10 MG/KG, DAY1+8/Q4W
     Route: 040
     Dates: start: 20060801, end: 20061026
  3. CETUXIMAB [Suspect]
     Indication: NON-SMALL CELL LUNG CANCER
     Dosage: 250 MG/M2, UNK
     Route: 042
     Dates: start: 20060801, end: 20070104
  4. CETUXIMAB [Suspect]
     Dosage: 400 MG/M2, UNK

REACTIONS (1)
  - DEATH [None]
